FAERS Safety Report 17045921 (Version 2)
Quarter: 2019Q4

REPORT INFORMATION
  Report Type: Report from Study
  Country: None (occurrence: CO)
  Receive Date: 20191119
  Receipt Date: 20191206
  Transmission Date: 20200122
  Serious: Yes (Hospitalization)
  Sender: FDA-Public Use
  Company Number: CO-ABBVIE-19K-036-3003696-00

PATIENT
  Sex: Female
  Weight: 59 kg

DRUGS (4)
  1. HUMIRA [Suspect]
     Active Substance: ADALIMUMAB
     Indication: PRODUCT USED FOR UNKNOWN INDICATION
     Route: 058
     Dates: start: 20121220, end: 201907
  2. VERAPAMILO [Concomitant]
     Indication: HYPERTENSION
     Route: 048
     Dates: end: 201910
  3. HUMIRA [Suspect]
     Active Substance: ADALIMUMAB
     Indication: RHEUMATOID ARTHRITIS
     Route: 058
     Dates: start: 20190717, end: 201907
  4. LOSARTAN. [Concomitant]
     Active Substance: LOSARTAN
     Indication: HYPERTENSION
     Route: 048
     Dates: end: 201910

REACTIONS (12)
  - Pulmonary function test abnormal [Unknown]
  - Cardiac disorder [Unknown]
  - Blood triglycerides increased [Unknown]
  - Blood creatinine increased [Recovering/Resolving]
  - Headache [Recovering/Resolving]
  - Choking [Unknown]
  - Drowning [Recovering/Resolving]
  - Dengue haemorrhagic fever [Recovering/Resolving]
  - Dizziness [Recovering/Resolving]
  - Bronchitis chronic [Not Recovered/Not Resolved]
  - Hypertension [Recovering/Resolving]
  - Blood cholesterol increased [Unknown]

NARRATIVE: CASE EVENT DATE: 2015
